FAERS Safety Report 5730477-0 (Version None)
Quarter: 2008Q2

REPORT INFORMATION
  Report Type: 
  Country: None (occurrence: None)
  Receive Date: 20080507
  Receipt Date: 20080502
  Transmission Date: 20081010
  Serious: Yes (Hospitalization)
  Sender: FDA-Public Use
  Company Number: DE-JNJFOC-20080500469

PATIENT
  Age: 18 Year
  Sex: Male

DRUGS (2)
  1. ACETAMINOPHEN [Suspect]
  2. ACETAMINOPHEN [Suspect]
     Indication: INTENTIONAL DRUG MISUSE

REACTIONS (2)
  - ACUTE HEPATIC FAILURE [None]
  - INTENTIONAL OVERDOSE [None]
